FAERS Safety Report 4298418-3 (Version None)
Quarter: 2004Q1

REPORT INFORMATION
  Report Type: 
  Country: None (occurrence: None)
  Receive Date: 20040218
  Receipt Date: 20030715
  Transmission Date: 20041129
  Serious: Yes (Other)
  Sender: FDA-Public Use
  Company Number: US-BRISTOL-MYERS SQUIBB COMPANY-12325346

PATIENT
  Age: 46 Year
  Sex: Female

DRUGS (17)
  1. STADOL [Suspect]
     Indication: MIGRAINE
     Dosage: DOSE VALUE:  ONE EACH NOSTRIL EVERY 3 TO 4 HOURS AS NEEDED.
     Route: 045
     Dates: start: 19930101
  2. BUTALBITAL COMPOUND [Concomitant]
  3. PHENTERMINE HCL [Concomitant]
  4. HYDROCODONE + ACETAMINOPHEN [Concomitant]
  5. ESGIC [Concomitant]
  6. FIORINAL W/CODEINE [Concomitant]
  7. COMPAZINE [Concomitant]
  8. WELLBUTRIN [Concomitant]
  9. FENFLURAMINE [Concomitant]
  10. PONDIMIN [Concomitant]
  11. AMBIEN [Concomitant]
  12. NEURONTIN [Concomitant]
  13. TRAZODONE HCL [Concomitant]
  14. LORAZEPAM [Concomitant]
  15. ROXIPRIN [Concomitant]
  16. DEXEDRINE [Concomitant]
  17. ACETAMINOPHEN W/ CODEINE [Concomitant]

REACTIONS (4)
  - ANXIETY [None]
  - DEPENDENCE [None]
  - HEADACHE [None]
  - SUICIDAL IDEATION [None]
